FAERS Safety Report 5145562-4 (Version None)
Quarter: 2006Q4

REPORT INFORMATION
  Report Type: 
  Country: None (occurrence: None)
  Receive Date: 20061102
  Receipt Date: 20061027
  Transmission Date: 20070319
  Serious: Yes (Life-Threatening)
  Sender: FDA-Public Use
  Company Number: 2006AL003328

PATIENT
  Age: 71 Year
  Sex: Female

DRUGS (9)
  1. METFORMIN HYDROCHLORIDE [Suspect]
     Indication: DIABETES MELLITUS NON-INSULIN-DEPENDENT
     Dosage: 850 MG; TID; PO
     Route: 048
  2. AMLODIPINE [Concomitant]
  3. BEZAFIBRATE [Concomitant]
  4. DOMPERIDONE [Concomitant]
  5. GLICLAZIDE [Concomitant]
  6. INDAPAMIDE [Concomitant]
  7. NITROFURANTOIN [Concomitant]
  8. PIOGLITAZONE HCL [Concomitant]
  9. RAMIPRIL [Concomitant]

REACTIONS (3)
  - CARDIAC ARREST [None]
  - ELECTROMECHANICAL DISSOCIATION [None]
  - METABOLIC ACIDOSIS [None]
